FAERS Safety Report 5816053-X (Version None)
Quarter: 2008Q3

REPORT INFORMATION
  Report Type: 
  Country: None (occurrence: None)
  Receive Date: 20080721
  Receipt Date: 20080711
  Transmission Date: 20090109
  Serious: Yes (Death, Hospitalization, Other)
  Sender: FDA-Public Use
  Company Number: GB-ELI_LILLY_AND_COMPANY-GB200802006825

PATIENT
  Sex: Male
  Weight: 87 kg

DRUGS (9)
  1. GEMZAR [Suspect]
     Indication: NON-SMALL CELL LUNG CANCER
     Dosage: 1250 MG/M2, 2740MG
     Route: 065
     Dates: start: 20071120
  2. GEMZAR [Interacting]
     Dosage: UNK, UNKNOWN
     Route: 065
     Dates: start: 20080102, end: 20080102
  3. GEMZAR [Interacting]
     Dosage: UNK, UNKNOWN
     Route: 065
     Dates: start: 20080109
  4. NAPROXEN [Interacting]
     Indication: GOUT
     Dosage: UNK, UNKNOWN
     Route: 065
  5. ACETAMINOPHEN W/ CODEINE [Concomitant]
     Indication: ARTHRITIS
     Dosage: UNK, UNKNOWN
     Route: 048
  6. SERETIDE [Concomitant]
     Dosage: 2 D/F, 2/D
     Route: 065
  7. COMBIVENT [Concomitant]
     Dosage: 2 D/F, 2/D
     Route: 065
  8. OMEPRAZOLE [Concomitant]
     Dosage: 20 MG, DAILY (1/D)
     Route: 065
  9. GABAPENTIN [Concomitant]
     Dosage: 300 MG, 2/D
     Route: 065

REACTIONS (11)
  - ALOPECIA [None]
  - BONE MARROW FAILURE [None]
  - CELLULITIS [None]
  - COUGH [None]
  - DYSPNOEA [None]
  - HYPERHIDROSIS [None]
  - MUCOSAL INFLAMMATION [None]
  - PULMONARY OEDEMA [None]
  - RASH ERYTHEMATOUS [None]
  - RENAL FAILURE ACUTE [None]
  - SEPSIS [None]
